FAERS Safety Report 17297670 (Version 1)
Quarter: 2020Q1

REPORT INFORMATION
  Report Type: Spontaneous
  Country: NL (occurrence: NL)
  Receive Date: 20200122
  Receipt Date: 20200122
  Transmission Date: 20200409
  Serious: Yes (Other)
  Sender: FDA-Public Use
  Company Number: NL-SCIEGEN PHARMACEUTICALS INC-2020SCILIT00012

PATIENT
  Age: 60 Year
  Sex: Female

DRUGS (6)
  1. LITHIUM. [Interacting]
     Active Substance: LITHIUM
  2. NAPROXEN SODIUM. [Suspect]
     Active Substance: NAPROXEN SODIUM
  3. METFORMIN [Concomitant]
     Active Substance: METFORMIN HYDROCHLORIDE
  4. OMEPRAZOLE. [Concomitant]
     Active Substance: OMEPRAZOLE
  5. VALPROIC ACID. [Interacting]
     Active Substance: VALPROIC ACID
  6. LORAZEPAM. [Concomitant]
     Active Substance: LORAZEPAM

REACTIONS (3)
  - Diabetes insipidus [Recovered/Resolved]
  - Drug interaction [Recovered/Resolved]
  - Toxicity to various agents [Recovered/Resolved]
